FAERS Safety Report 5146353-0 (Version None)
Quarter: 2006Q4

REPORT INFORMATION
  Report Type: 
  Country: None (occurrence: None)
  Receive Date: 20061102
  Receipt Date: 20061003
  Transmission Date: 20070319
  Serious: Yes (Hospitalization, Other)
  Sender: FDA-Public Use
  Company Number: 2006124711

PATIENT
  Sex: Female

DRUGS (1)
  1. BEXTRA [Suspect]
     Dosage: ORAL
     Route: 048
     Dates: start: 20020901

REACTIONS (23)
  - ANXIETY [None]
  - CARDIO-RESPIRATORY ARREST [None]
  - CEREBRAL INFARCTION [None]
  - CIRCULATORY COLLAPSE [None]
  - CLOSTRIDIAL INFECTION [None]
  - COLITIS [None]
  - DEEP VEIN THROMBOSIS [None]
  - DEPRESSED LEVEL OF CONSCIOUSNESS [None]
  - DEPRESSION [None]
  - DIFFICULT TO WEAN FROM VENTILATOR [None]
  - INAPPROPRIATE ANTIDIURETIC HORMONE SECRETION [None]
  - MALNUTRITION [None]
  - MEDIASTINAL HAEMATOMA [None]
  - MYOCARDIAL INFARCTION [None]
  - MYOCARDIAL ISCHAEMIA [None]
  - PLEURAL EFFUSION [None]
  - POST PROCEDURAL HAEMORRHAGE [None]
  - RESPIRATORY FAILURE [None]
  - SCAR [None]
  - SURGICAL PROCEDURE REPEATED [None]
  - TRACHEOBRONCHITIS [None]
  - UROSEPSIS [None]
  - VENTRICULAR TACHYCARDIA [None]
